FAERS Safety Report 5243263-5 (Version None)
Quarter: 2007Q1

REPORT INFORMATION
  Report Type: 
  Country: None (occurrence: None)
  Receive Date: 20070221
  Receipt Date: 20070212
  Transmission Date: 20070707
  Serious: Yes (Death)
  Sender: FDA-Public Use
  Company Number: US-GILEAD-2007-0011197

PATIENT
  Sex: Male
  Weight: 54.934 kg

DRUGS (20)
  1. EMTRICITABINE/TENOFOVIR DISOPROXIL FUMARATE [Suspect]
     Indication: HIV INFECTION
     Route: 048
     Dates: start: 20060807, end: 20070113
  2. KALETRA [Suspect]
     Indication: HIV INFECTION
     Route: 048
     Dates: start: 20060807, end: 20070113
  3. COUMADIN [Concomitant]
  4. COUMADIN [Concomitant]
  5. LEVOTHYROXINE SODIUM [Concomitant]
  6. ETHAMBUTOL HYDROCHLORIDE [Concomitant]
  7. FLUCONAZOLE [Concomitant]
  8. LANSOPRAZOLE [Concomitant]
  9. CALCIUM PLUS VITAMIN D [Concomitant]
  10. VICON FORTE [Concomitant]
  11. SODIUM BICARBONATE [Concomitant]
  12. RIFABUTIN [Concomitant]
  13. VALCYTE [Concomitant]
  14. BACTRIM [Concomitant]
  15. AZITHROMYCIN [Concomitant]
  16. SERTRALINE [Concomitant]
  17. AMBIEN [Concomitant]
  18. MS CONTIN [Concomitant]
  19. PERCOCET [Concomitant]
  20. COMPAZINE [Concomitant]
     Route: 048

REACTIONS (1)
  - MYCOBACTERIUM AVIUM COMPLEX INFECTION [None]
